FAERS Safety Report 9862857 (Version 1)
Quarter: 2014Q1

REPORT INFORMATION
  Report Type: Spontaneous
  Country: US (occurrence: US)
  Receive Date: 20140203
  Receipt Date: 20140203
  Transmission Date: 20141002
  Serious: Yes (Death)
  Sender: FDA-Public Use
  Company Number: CHPA2014US001439

PATIENT
  Age: 63 Year
  Sex: Male

DRUGS (2)
  1. DIPHENHYDRAMINE [Suspect]
     Route: 048
  2. ETHYLENE GLYCOL [Suspect]
     Route: 048

REACTIONS (1)
  - Completed suicide [Fatal]
